FAERS Safety Report 20044300 (Version 1)
Quarter: 2021Q4

REPORT INFORMATION
  Report Type: Spontaneous
  Country: FR (occurrence: FR)
  Receive Date: 20211108
  Receipt Date: 20211108
  Transmission Date: 20220303
  Serious: Yes (Other)
  Sender: FDA-Public Use
  Company Number: FR-ANIPHARMA-2021-FR-000228

PATIENT
  Age: 52 Year
  Sex: Male
  Weight: 80 kg

DRUGS (7)
  1. CANDESARTAN CILEXETIL [Suspect]
     Active Substance: CANDESARTAN CILEXETIL
     Indication: Product used for unknown indication
     Route: 048
     Dates: start: 20141001
  2. ACITRETIN [Suspect]
     Active Substance: ACITRETIN
     Dosage: 20 MG DAILY / 30 MG DAILY
     Route: 048
     Dates: start: 20161125, end: 20161223
  3. DILTIAZEM HYDROCHLORIDE [Suspect]
     Active Substance: DILTIAZEM HYDROCHLORIDE
     Route: 048
     Dates: start: 20141001
  4. METHOTREXATE [Suspect]
     Active Substance: METHOTREXATE
     Dosage: 15MG/WEEK / DOSE TEXT: 17.5 MG/WEEK
     Route: 048
     Dates: start: 20170630, end: 20171015
  5. CICLETANINE HYDROCHLORIDE [Suspect]
     Active Substance: CICLETANINE HYDROCHLORIDE
     Route: 048
     Dates: start: 20140101
  6. TALTZ [Suspect]
     Active Substance: IXEKIZUMAB
     Dosage: 80MG IN 4 WEEKS / 80MG IN 6 WEEKS
     Route: 058
     Dates: start: 20210214, end: 20210924
  7. DERMOVAL [Concomitant]
     Route: 065

REACTIONS (1)
  - Tonsil cancer [Not Recovered/Not Resolved]

NARRATIVE: CASE EVENT DATE: 20210901
